FAERS Safety Report 6821131-2 (Version None)
Quarter: 2010Q3

REPORT INFORMATION
  Report Type: 
  Country: None (occurrence: None)
  Receive Date: 20100707
  Receipt Date: 20090528
  Transmission Date: 20110219
  Serious: No
  Sender: FDA-Public Use
  Company Number: US-PFIZER INC-2008002373

PATIENT
  Sex: Female
  Weight: 80.74 kg

DRUGS (6)
  1. ZOLOFT [Suspect]
     Indication: DEPRESSION
     Dosage: 150 MG, 1X/DAY
     Route: 048
     Dates: start: 20080302
  2. GEODON [Suspect]
     Dates: start: 20090324, end: 20090406
  3. VALIUM [Concomitant]
  4. METOPROLOL [Concomitant]
  5. PROZAC [Concomitant]
     Dosage: UNK
  6. KLONOPIN [Concomitant]
     Dosage: UNK

REACTIONS (10)
  - DIARRHOEA [None]
  - DRUG EFFECT DECREASED [None]
  - DRUG INTOLERANCE [None]
  - HEADACHE [None]
  - HEART RATE IRREGULAR [None]
  - NAUSEA [None]
  - PALPITATIONS [None]
  - TREMOR [None]
  - UNEVALUABLE EVENT [None]
  - WRONG TECHNIQUE IN DRUG USAGE PROCESS [None]
